FAERS Safety Report 20446469 (Version 3)
Quarter: 2024Q3

REPORT INFORMATION
  Report Type: Report from Study
  Country: US (occurrence: US)
  Receive Date: 20220208
  Receipt Date: 20240722
  Transmission Date: 20241017
  Serious: Yes (Hospitalization, Other)
  Sender: JAZZ
  Company Number: US-GW PHARMA-202201USGW00493

PATIENT
  Sex: Male
  Weight: 38.549 kg

DRUGS (7)
  1. EPIDIOLEX [Suspect]
     Active Substance: CANNABIDIOL
     Indication: Lennox-Gastaut syndrome
     Dosage: UNK
     Route: 048
     Dates: start: 2019
  2. EPIDIOLEX [Suspect]
     Active Substance: CANNABIDIOL
     Indication: Seizure
     Dosage: 15.56 MG/KG/DAY, 300 MILLIGRAM, BID
     Route: 048
     Dates: start: 202109
  3. EPIDIOLEX [Suspect]
     Active Substance: CANNABIDIOL
     Dosage: 6 MILLILITER
     Route: 048
  4. EPIDIOLEX [Suspect]
     Active Substance: CANNABIDIOL
     Dosage: UNK
     Route: 048
     Dates: start: 202204
  5. EPIDIOLEX [Suspect]
     Active Substance: CANNABIDIOL
     Dosage: 3 MILLILITER, BID
     Route: 048
     Dates: start: 201901
  6. BANZEL [Concomitant]
     Active Substance: RUFINAMIDE
     Dosage: UNK
  7. CODRIL [Concomitant]
     Dosage: UNK

REACTIONS (3)
  - Pneumonia [Recovered/Resolved]
  - Hospitalisation [Unknown]
  - Weight decreased [Unknown]
